FAERS Safety Report 12519635 (Version 3)
Quarter: 2016Q4

REPORT INFORMATION
  Report Type: Spontaneous
  Country: BR (occurrence: BR)
  Receive Date: 20160701
  Receipt Date: 20161104
  Transmission Date: 20170207
  Serious: Yes (Other)
  Sender: FDA-Public Use
  Company Number: BR-ROCHE-1785861

PATIENT
  Sex: Female

DRUGS (5)
  1. RIVOTRIL [Suspect]
     Active Substance: CLONAZEPAM
     Indication: PRODUCT USED FOR UNKNOWN INDICATION
     Route: 065
  2. PAROXETINE. [Suspect]
     Active Substance: PAROXETINE
     Indication: PRODUCT USED FOR UNKNOWN INDICATION
     Route: 065
  3. RIVOTRIL [Suspect]
     Active Substance: CLONAZEPAM
     Route: 065
  4. FRONTAL [Concomitant]
     Active Substance: ALPRAZOLAM
  5. ALPRAZOLAM. [Suspect]
     Active Substance: ALPRAZOLAM
     Indication: PRODUCT USED FOR UNKNOWN INDICATION
     Route: 065

REACTIONS (19)
  - Fatigue [Unknown]
  - Influenza [Unknown]
  - Tension [Unknown]
  - Heart rate increased [Unknown]
  - Lethargy [Unknown]
  - Drug ineffective [Unknown]
  - Blood pressure increased [Unknown]
  - Head injury [Unknown]
  - Arrhythmia [Unknown]
  - Limb injury [Unknown]
  - Injury [Unknown]
  - Suspected counterfeit product [Unknown]
  - Lower limb fracture [Unknown]
  - Headache [Unknown]
  - Areflexia [Unknown]
  - Stress [Unknown]
  - Anxiety [Unknown]
  - Tremor [Unknown]
  - Head discomfort [Unknown]
